FAERS Safety Report 24908705 (Version 1)
Quarter: 2025Q1

REPORT INFORMATION
  Report Type: Report from Study
  Country: US (occurrence: US)
  Receive Date: 20250131
  Receipt Date: 20250131
  Transmission Date: 20250408
  Serious: Yes (Disabling)
  Sender: ABBVIE
  Company Number: US-ABBVIE-6106958

PATIENT
  Sex: Male

DRUGS (1)
  1. LUMIGAN [Suspect]
     Active Substance: BIMATOPROST
     Indication: Glaucoma
     Route: 047

REACTIONS (4)
  - Disability [Unknown]
  - Product contamination [Not Recovered/Not Resolved]
  - Poor quality product administered [Unknown]
  - Device breakage [Unknown]
